FAERS Safety Report 9346369 (Version 1)
Quarter: 2013Q2

REPORT INFORMATION
  Report Type: Spontaneous
  Country: FR (occurrence: FR)
  Receive Date: 20130613
  Receipt Date: 20130613
  Transmission Date: 20140414
  Serious: Yes (Hospitalization)
  Sender: FDA-Public Use
  Company Number: FR-PFIZER INC-2013176204

PATIENT
  Age: 74 Year
  Sex: Female

DRUGS (4)
  1. INIPOMP [Suspect]
     Dosage: 20 MG, DAILY
     Route: 048
     Dates: start: 20130313, end: 20130319
  2. PANTOPRAZOLE BIOGARAN [Suspect]
     Dosage: UNK
     Route: 048
     Dates: start: 20130320, end: 20130323
  3. ISOPTIN [Concomitant]
     Dosage: 240 MG, UNK
     Route: 048
  4. PRAVASTATIN [Concomitant]
     Dosage: UNK
     Route: 048

REACTIONS (6)
  - Rash maculo-papular [Recovering/Resolving]
  - Pruritus [Recovering/Resolving]
  - Malaise [Recovering/Resolving]
  - Orthostatic hypotension [None]
  - Thrombocytopenia [None]
  - Haemoglobin decreased [None]
